FAERS Safety Report 19075390 (Version 1)
Quarter: 2021Q1

REPORT INFORMATION
  Report Type: Spontaneous
  Country: US (occurrence: US)
  Receive Date: 20210330
  Receipt Date: 20210330
  Transmission Date: 20210420
  Serious: No
  Sender: FDA-Public Use
  Company Number: NVSC2021US068806

PATIENT
  Sex: Female

DRUGS (2)
  1. XIIDRA [Suspect]
     Active Substance: LIFITEGRAST
     Indication: PRODUCT USED FOR UNKNOWN INDICATION
     Dosage: 5 % (2/DAY)
     Route: 065
     Dates: start: 20190701
  2. OTC?HP [Concomitant]
     Active Substance: CLARITHROMYCIN\OMEPRAZOLE\TINIDAZOLE
     Indication: PRODUCT USED FOR UNKNOWN INDICATION
     Dosage: UNK
     Route: 065

REACTIONS (3)
  - Dysgeusia [Recovering/Resolving]
  - Eye irritation [Recovering/Resolving]
  - Nasal discomfort [Recovering/Resolving]
